FAERS Safety Report 7344761-0 (Version None)
Quarter: 2011Q1

REPORT INFORMATION
  Report Type: 
  Country: None (occurrence: None)
  Receive Date: 20110307
  Receipt Date: 20110307
  Transmission Date: 20110831
  Serious: Yes (Other)
  Sender: FDA-Public Use
  Company Number: None

PATIENT
  Age: 9 Year
  Sex: Male
  Weight: 24.4942 kg

DRUGS (1)
  1. VYVANSE [Suspect]
     Indication: ATTENTION DEFICIT/HYPERACTIVITY DISORDER
     Dosage: 30 MG DAILY PO
     Route: 048
     Dates: start: 20110222, end: 20110223

REACTIONS (7)
  - FATIGUE [None]
  - SKIN WARM [None]
  - GAIT DISTURBANCE [None]
  - FEELING ABNORMAL [None]
  - ABNORMAL BEHAVIOUR [None]
  - OCULAR HYPERAEMIA [None]
  - DYSARTHRIA [None]
